FAERS Safety Report 9423171 (Version 2)
Quarter: 2013Q4

REPORT INFORMATION
  Report Type: Spontaneous
  Country: GB (occurrence: GB)
  Receive Date: 20130726
  Receipt Date: 20131105
  Transmission Date: 20140711
  Serious: Yes (Other)
  Sender: FDA-Public Use
  Company Number: PHFR2013GB004291

PATIENT
  Age: 63 Year
  Sex: Female

DRUGS (7)
  1. CARBAMAZEPINE [Suspect]
     Indication: NEURALGIA
     Dosage: UNK
     Dates: start: 20130709
  2. PAROXETINE [Concomitant]
     Dosage: UNK
     Dates: start: 20130515
  3. PIROXICAM [Concomitant]
     Dates: start: 20130515, end: 20130612
  4. CALCIUM CARBONATE [Concomitant]
     Dosage: UNK
     Dates: start: 20130523
  5. CETIRIZINE [Concomitant]
     Dosage: UNK
     Dates: start: 20130705
  6. WHITE SOFT PARAFFIN [Concomitant]
     Dosage: UNK
     Dates: start: 20130705
  7. FLUCLOXACILLIN [Concomitant]
     Dosage: UNK
     Dates: start: 20130709

REACTIONS (1)
  - Memory impairment [Recovered/Resolved with Sequelae]
